FAERS Safety Report 15754473 (Version 2)
Quarter: 2022Q1

REPORT INFORMATION
  Report Type: Spontaneous
  Country: CH (occurrence: CH)
  Receive Date: 20181224
  Receipt Date: 20220131
  Transmission Date: 20220423
  Serious: Yes (Disabling)
  Sender: FDA-Public Use
  Company Number: CH-SM-2018-14545

PATIENT
  Age: 58 Year
  Sex: Female

DRUGS (29)
  1. METRONIDAZOLE [Suspect]
     Active Substance: METRONIDAZOLE
     Route: 042
     Dates: start: 20181122, end: 20181122
  2. IBUPROFEN [Suspect]
     Active Substance: IBUPROFEN
     Dosage: 1200 MILLIGRAM DAILY;
     Route: 048
     Dates: end: 20181128
  3. TORADOL [Suspect]
     Active Substance: KETOROLAC TROMETHAMINE
     Dosage: IN TOTAL
     Route: 042
     Dates: start: 20181122, end: 20181122
  4. PROPOFOL [Suspect]
     Active Substance: PROPOFOL
     Dosage: IN TOTAL
     Route: 042
     Dates: start: 20181122, end: 20181122
  5. SUFENTA [Suspect]
     Active Substance: SUFENTANIL CITRATE
     Dosage: IN TOTAL
     Route: 042
     Dates: start: 20181122, end: 20181122
  6. MORPHINE [Suspect]
     Active Substance: MORPHINE
     Dosage: IN TOTAL
     Route: 042
     Dates: start: 20181122, end: 20181122
  7. MORPHINE [Suspect]
     Active Substance: MORPHINE
     Route: 058
     Dates: start: 20181122, end: 20181124
  8. PERFALGAN [Suspect]
     Active Substance: ACETAMINOPHEN
     Dosage: IN TOTAL
     Route: 042
     Dates: start: 20181122, end: 20181122
  9. DAFALGAN [Suspect]
     Active Substance: ACETAMINOPHEN
     Dosage: 4 GRAM DAILY;
     Route: 048
     Dates: start: 20181122, end: 20181128
  10. DAFALGAN [Suspect]
     Active Substance: ACETAMINOPHEN
     Route: 048
     Dates: start: 20181129, end: 20181201
  11. TRAMADOL [Suspect]
     Active Substance: TRAMADOL
     Dosage: MAX 4X/D ; AS NECESSARY
     Route: 048
     Dates: start: 20181122, end: 20181128
  12. BUPRENORPHINE HYDROCHLORIDE [Suspect]
     Active Substance: BUPRENORPHINE HYDROCHLORIDE
     Dosage: MAX 3X/D ; AS NECESSARY
     Route: 060
     Dates: start: 20181124, end: 20181126
  13. ROCURONIUM BROMIDE [Concomitant]
     Active Substance: ROCURONIUM BROMIDE
     Route: 065
     Dates: start: 20181122, end: 20181122
  14. EPHEDRINE [Concomitant]
     Active Substance: EPHEDRINE
     Route: 065
     Dates: start: 20181122, end: 20181122
  15. PHENYLEPHRINE [Concomitant]
     Active Substance: PHENYLEPHRINE HYDROCHLORIDE
     Route: 065
     Dates: start: 20181122, end: 20181122
  16. CLONIDINE [Concomitant]
     Active Substance: CLONIDINE
     Route: 065
     Dates: start: 20181122, end: 20181122
  17. ZINACEF [Concomitant]
     Active Substance: CEFUROXIME SODIUM
     Route: 065
     Dates: start: 20181122, end: 20181122
  18. LIDOCAINE [Concomitant]
     Active Substance: LIDOCAINE
     Route: 065
     Dates: start: 20181122, end: 20181122
  19. INDOCYANINE GREEN [Concomitant]
     Active Substance: INDOCYANINE GREEN
     Route: 065
     Dates: start: 20181122
  20. GLYCOPYRROLATE\NEOSTIGMINE [Concomitant]
     Active Substance: GLYCOPYRROLATE\NEOSTIGMINE
     Route: 065
     Dates: start: 20181122
  21. DROPERIDOL [Concomitant]
     Active Substance: DROPERIDOL
     Route: 065
     Dates: start: 20181122, end: 20181122
  22. NEXIUM [Concomitant]
     Active Substance: ESOMEPRAZOLE MAGNESIUM
     Route: 065
     Dates: end: 20181128
  23. EUTHYROX [Concomitant]
     Active Substance: LEVOTHYROXINE SODIUM
     Dosage: LONG-TERM TREATMENT
     Route: 065
  24. Paspertin [Concomitant]
     Route: 065
     Dates: end: 20181128
  25. FIG FRUIT OIL\SORBITOL [Concomitant]
     Active Substance: FIG FRUIT OIL\SORBITOL
     Dates: end: 20181128
  26. ENOXAPARIN SODIUM [Concomitant]
     Active Substance: ENOXAPARIN SODIUM
     Route: 065
     Dates: end: 20181128
  27. ONDANSETRON [Concomitant]
     Active Substance: ONDANSETRON
     Dosage: AS NECESSARY
     Route: 065
     Dates: end: 20181128
  28. Temesta [Concomitant]
     Dosage: AS NECESSARY
     Route: 065
     Dates: end: 20181128
  29. NASONEX [Concomitant]
     Active Substance: MOMETASONE FUROATE
     Dosage: IN TOTAL
     Route: 065
     Dates: start: 20181129, end: 20181201

REACTIONS (1)
  - Hypoacusis [Not Recovered/Not Resolved]

NARRATIVE: CASE EVENT DATE: 20181128
